FAERS Safety Report 11397588 (Version 1)
Quarter: 2015Q3

REPORT INFORMATION
  Report Type: Report from Study
  Country: US (occurrence: US)
  Receive Date: 20150819
  Receipt Date: 20150819
  Transmission Date: 20151125
  Serious: Yes (Hospitalization)
  Sender: FDA-Public Use
  Company Number: US-BAXALTA-2015BLT001111

PATIENT
  Age: 28 Year
  Sex: Male
  Weight: 129.25 kg

DRUGS (8)
  1. ADVATE [Suspect]
     Active Substance: ANTIHEMOPHILIC FACTOR, HUMAN RECOMBINANT
     Indication: FACTOR VIII DEFICIENCY
     Dosage: 6825 IU, 3X A WEEK
     Route: 042
     Dates: start: 20150804, end: 20150804
  2. METOPROLOL [Concomitant]
     Active Substance: METOPROLOL
     Indication: CARDIAC FAILURE
     Dosage: 25 MG, 1X A DAY
     Route: 048
     Dates: start: 20150506, end: 20150808
  3. ADVATE [Suspect]
     Active Substance: ANTIHEMOPHILIC FACTOR, HUMAN RECOMBINANT
     Dosage: 3507 IU, ONCE
     Route: 042
     Dates: start: 20150808, end: 20150808
  4. LISINOPRIL. [Concomitant]
     Active Substance: LISINOPRIL
     Dosage: 2.5 MG, 2X A DAY
     Route: 048
     Dates: start: 20150808
  5. TORSEMIDE. [Concomitant]
     Active Substance: TORSEMIDE
     Indication: CARDIAC FAILURE
     Dosage: 60 MG, 2X A DAY
     Route: 048
     Dates: start: 20150709
  6. ADVATE [Suspect]
     Active Substance: ANTIHEMOPHILIC FACTOR, HUMAN RECOMBINANT
     Indication: HAEMORRHAGE PROPHYLAXIS
     Dosage: 6996 IU, ONCE
     Route: 042
     Dates: start: 20150807, end: 20150807
  7. ADVATE [Suspect]
     Active Substance: ANTIHEMOPHILIC FACTOR, HUMAN RECOMBINANT
     Dosage: 3507 IU, ONCE
     Route: 042
     Dates: start: 20150808, end: 20150808
  8. LISINOPRIL. [Concomitant]
     Active Substance: LISINOPRIL
     Indication: CARDIAC FAILURE
     Dosage: 5 MG, 2X A DAY
     Route: 048
     Dates: start: 20150428, end: 20150808

REACTIONS (1)
  - Acute kidney injury [Recovered/Resolved]

NARRATIVE: CASE EVENT DATE: 20150805
